APPROVED DRUG PRODUCT: MECLIZINE HYDROCHLORIDE
Active Ingredient: MECLIZINE HYDROCHLORIDE
Strength: 12.5MG
Dosage Form/Route: TABLET;ORAL
Application: A202640 | Product #001 | TE Code: AA
Applicant: AUROBINDO PHARMA USA INC
Approved: Sep 17, 2012 | RLD: No | RS: No | Type: RX